FAERS Safety Report 6856729-9 (Version None)
Quarter: 2010Q3

REPORT INFORMATION
  Report Type: 
  Country: None (occurrence: None)
  Receive Date: 20100719
  Receipt Date: 20100709
  Transmission Date: 20110219
  Serious: Yes (Hospitalization)
  Sender: FDA-Public Use
  Company Number: DE-ABBOTT-10P-062-0656662-00

PATIENT
  Age: 71 Year
  Sex: Female

DRUGS (3)
  1. KLACID [Suspect]
     Indication: PNEUMONIA
     Dates: start: 20100521, end: 20100523
  2. ROCEPHIN [Suspect]
     Indication: PNEUMONIA
     Dates: start: 20100521, end: 20100523
  3. TAZOBAC [Suspect]
     Indication: PNEUMONIA
     Dates: start: 20100522, end: 20100524

REACTIONS (4)
  - CHILLS [None]
  - CLOSTRIDIAL INFECTION [None]
  - DIARRHOEA [None]
  - PYREXIA [None]
